FAERS Safety Report 7039632-3 (Version None)
Quarter: 2010Q4

REPORT INFORMATION
  Report Type: 
  Country: None (occurrence: None)
  Receive Date: 20101012
  Receipt Date: 20101006
  Transmission Date: 20110411
  Serious: Yes (Death, Hospitalization)
  Sender: FDA-Public Use
  Company Number: A0885717A

PATIENT
  Age: 65 Year
  Sex: Male

DRUGS (1)
  1. AVANDIA [Suspect]
     Route: 048
     Dates: start: 19980101, end: 20070101

REACTIONS (9)
  - BLINDNESS [None]
  - DEATH [None]
  - MEMORY IMPAIRMENT [None]
  - MYOCARDIAL INFARCTION [None]
  - POLLAKIURIA [None]
  - RASH [None]
  - RETINAL TEAR [None]
  - SPINAL FRACTURE [None]
  - WEIGHT INCREASED [None]
